FAERS Safety Report 24553928 (Version 1)
Quarter: 2024Q4

REPORT INFORMATION
  Report Type: Spontaneous
  Country: CN (occurrence: CN)
  Receive Date: 20241028
  Receipt Date: 20241028
  Transmission Date: 20250115
  Serious: No
  Sender: ROCHE
  Company Number: CN-ROCHE-10000097182

PATIENT
  Age: 8 Year
  Sex: Male

DRUGS (4)
  1. SOMATROPIN [Suspect]
     Active Substance: SOMATROPIN
     Indication: Short stature
     Route: 050
  2. SOMATROPIN [Suspect]
     Active Substance: SOMATROPIN
     Indication: Malnutrition
  3. SOMATROPIN [Suspect]
     Active Substance: SOMATROPIN
     Indication: Congenital hypothyroidism
  4. LEVOTHYROXINE SODIUM [Concomitant]
     Active Substance: LEVOTHYROXINE SODIUM

REACTIONS (1)
  - Epilepsy [Recovered/Resolved]
